FAERS Safety Report 5802306-8 (Version None)
Quarter: 2008Q3

REPORT INFORMATION
  Report Type: 
  Country: None (occurrence: None)
  Receive Date: 20080707
  Receipt Date: 20080626
  Transmission Date: 20090109
  Serious: Yes (Other)
  Sender: FDA-Public Use
  Company Number: JP-SANOFI-SYNTHELABO-A01200805826

PATIENT
  Age: 64 Year
  Sex: Male

DRUGS (2)
  1. PLAVIX [Suspect]
     Indication: STENT PLACEMENT
     Dosage: UNK
     Route: 048
  2. PLAVIX [Suspect]
     Indication: ANGINA UNSTABLE
     Dosage: UNK
     Route: 048

REACTIONS (2)
  - PRIMARY AMYLOIDOSIS [None]
  - PROTEIN URINE PRESENT [None]
